FAERS Safety Report 10250095 (Version 2)
Quarter: 2014Q2

REPORT INFORMATION
  Report Type: Spontaneous
  Country: US (occurrence: US)
  Receive Date: 20140620
  Receipt Date: 20140620
  Transmission Date: 20141212
  Serious: Yes (Other)
  Sender: FDA-Public Use
  Company Number: US-BRISTOL-MYERS SQUIBB COMPANY-20660684

PATIENT
  Age: 86 Year
  Sex: Female
  Weight: 62.58 kg

DRUGS (10)
  1. ELIQUIS [Suspect]
     Indication: CEREBROVASCULAR ACCIDENT
  2. MAGNESIUM [Concomitant]
  3. AMBIEN [Concomitant]
  4. DEXLANSOPRAZOLE [Concomitant]
  5. RAMACE [Concomitant]
  6. CALCIUM [Concomitant]
  7. FISH OIL [Concomitant]
  8. SOTALOL [Concomitant]
  9. METOPROLOL [Concomitant]
  10. CRESTOR [Concomitant]

REACTIONS (1)
  - Haemorrhage intracranial [Recovered/Resolved with Sequelae]
